FAERS Safety Report 19822829 (Version 2)
Quarter: 2021Q4

REPORT INFORMATION
  Report Type: Spontaneous
  Country: JP (occurrence: JP)
  Receive Date: 20210913
  Receipt Date: 20211028
  Transmission Date: 20220303
  Serious: Yes (Death, Other)
  Sender: FDA-Public Use
  Company Number: JP-PFIZER INC-202101162970

PATIENT
  Age: 74 Year
  Sex: Male

DRUGS (2)
  1. LORBRENA [Suspect]
     Active Substance: LORLATINIB
     Indication: Non-small cell lung cancer
     Dosage: UNK
     Dates: start: 20190724, end: 20201127
  2. DECADRON [Concomitant]
     Active Substance: DEXAMETHASONE
     Dosage: 4 MG, DAILY
     Route: 048
     Dates: start: 20200623, end: 20201127

REACTIONS (6)
  - Pulmonary embolism [Fatal]
  - Thrombosis [Fatal]
  - Thrombophlebitis migrans [Fatal]
  - Neoplasm progression [Fatal]
  - Oxygen saturation decreased [Unknown]
  - Dyspnoea [Unknown]

NARRATIVE: CASE EVENT DATE: 20201022
